FAERS Safety Report 4399866-3 (Version None)
Quarter: 2004Q3

REPORT INFORMATION
  Report Type: 
  Country: None (occurrence: None)
  Receive Date: 20040716
  Receipt Date: 20040628
  Transmission Date: 20050211
  Serious: Yes (Other)
  Sender: FDA-Public Use
  Company Number: GB-JNJFOC-20040607726

PATIENT
  Age: 65 Year
  Sex: Female

DRUGS (9)
  1. REMICADE [Suspect]
     Indication: RHEUMATOID ARTHRITIS
     Dosage: 3 MG/KG, INTRAVENOUS
     Route: 042
     Dates: start: 20010501, end: 20021101
  2. ETANERCEPT (ETANERCEPT) POWDER [Suspect]
     Indication: RHEUMATOID ARTHRITIS
     Dosage: 25 MG, 2 ON 1 WEEK, SUBCUTANEOUS
     Route: 058
     Dates: start: 20030727
  3. ANAKINRA (ANAKINRA) [Suspect]
     Indication: RHEUMATOID ARTHRITIS
     Dosage: 100 MG, SUBCUTANEOUS
     Route: 058
     Dates: start: 20021217, end: 20030501
  4. METHOTREXATE [Concomitant]
  5. METFORMIN HCL [Concomitant]
  6. ENALAPRIL MALEATE [Concomitant]
  7. FUROSEMIDE [Concomitant]
  8. OMEPRAZOLE [Concomitant]
  9. AMITRIPTYLINE HCL [Concomitant]

REACTIONS (1)
  - BASAL CELL CARCINOMA [None]
